FAERS Safety Report 12621381 (Version 1)
Quarter: 2016Q3

REPORT INFORMATION
  Report Type: Spontaneous
  Country: US (occurrence: US)
  Receive Date: 20160804
  Receipt Date: 20160804
  Transmission Date: 20161109
  Serious: No
  Sender: FDA-Public Use
  Company Number: US-BEH-2016071818

PATIENT
  Sex: Female
  Weight: 66.21 kg

DRUGS (13)
  1. ZEMAIRA [Suspect]
     Active Substance: .ALPHA.1-PROTEINASE INHIBITOR HUMAN
     Indication: ALPHA-1 ANTI-TRYPSIN DEFICIENCY
     Dosage: 60 MG/KG, QW
     Route: 042
     Dates: start: 20100505
  2. SODIUM CHLORIDE. [Concomitant]
     Active Substance: SODIUM CHLORIDE
  3. PANTOPRAZOLE [Concomitant]
     Active Substance: PANTOPRAZOLE SODIUM
  4. CYCLOBENZAPRINE [Concomitant]
     Active Substance: CYCLOBENZAPRINE
  5. ASPIRIN. [Concomitant]
     Active Substance: ASPIRIN
  6. EPIPEN [Concomitant]
     Active Substance: EPINEPHRINE
  7. LMX                                /00033401/ [Concomitant]
  8. FLONASE [Concomitant]
     Active Substance: FLUTICASONE PROPIONATE
  9. TRAZODONE [Concomitant]
     Active Substance: TRAZODONE HYDROCHLORIDE
  10. DIPHENHYDRAMINE. [Concomitant]
     Active Substance: DIPHENHYDRAMINE
  11. ALEVE [Concomitant]
     Active Substance: NAPROXEN SODIUM
  12. GLUCOSAMINE [Concomitant]
     Active Substance: GLUCOSAMINE
  13. SIMVASTATIN. [Concomitant]
     Active Substance: SIMVASTATIN

REACTIONS (1)
  - Liver disorder [Unknown]
